FAERS Safety Report 9986203 (Version 2)
Quarter: 2014Q1

REPORT INFORMATION
  Report Type: Report from Study
  Country: US (occurrence: US)
  Receive Date: 20140307
  Receipt Date: 20140307
  Transmission Date: 20141002
  Serious: No
  Sender: FDA-Public Use
  Company Number: US-ABBVIE-12P-163-0975312-00

PATIENT
  Age: 76 Year
  Sex: Male

DRUGS (27)
  1. HUMIRA [Suspect]
     Indication: RHEUMATOID ARTHRITIS
  2. MOTRIN [Suspect]
     Indication: PRODUCT USED FOR UNKNOWN INDICATION
  3. NEXIUM [Concomitant]
     Indication: PRODUCT USED FOR UNKNOWN INDICATION
  4. LEXAPRO [Concomitant]
     Indication: DRUG THERAPY
  5. BISOPROLOL FUMARATE [Concomitant]
     Indication: DRUG THERAPY
  6. FISH OIL [Concomitant]
     Indication: DRUG THERAPY
  7. PLAVIX [Concomitant]
     Indication: DRUG THERAPY
  8. ASA [Concomitant]
     Indication: DRUG THERAPY
  9. NIASPAN [Concomitant]
     Indication: DRUG THERAPY
  10. LIPITOR [Concomitant]
     Indication: DRUG THERAPY
  11. DAILY VITAMINS [Concomitant]
     Indication: PRODUCT USED FOR UNKNOWN INDICATION
  12. GLUCOTROL XL [Concomitant]
     Indication: DIABETES MELLITUS
  13. ASCORBIC ACID [Concomitant]
     Indication: PRODUCT USED FOR UNKNOWN INDICATION
  14. ARAVA [Concomitant]
     Indication: RHEUMATOID ARTHRITIS
  15. VICODIN [Concomitant]
     Indication: RHEUMATOID ARTHRITIS
  16. VICODIN [Concomitant]
     Indication: BACK PAIN
  17. LAXATIVES [Concomitant]
     Indication: PRODUCT USED FOR UNKNOWN INDICATION
  18. AMBIEN [Concomitant]
     Indication: INSOMNIA
  19. VITAMIN C [Concomitant]
     Indication: PRODUCT USED FOR UNKNOWN INDICATION
  20. VITAMIN D [Concomitant]
     Indication: PRODUCT USED FOR UNKNOWN INDICATION
  21. GARLIC [Concomitant]
  22. CALCIUM [Concomitant]
     Indication: PRODUCT USED FOR UNKNOWN INDICATION
  23. SINGULAIR [Concomitant]
     Indication: HYPERSENSITIVITY
  24. SANCTURA [Concomitant]
     Indication: BLADDER DISORDER
  25. SANCTURA [Concomitant]
     Indication: PROSTATOMEGALY
  26. UROXATRAL [Concomitant]
     Indication: BLADDER DISORDER
  27. UROXATRAL [Concomitant]
     Indication: PROSTATOMEGALY

REACTIONS (5)
  - Laceration [Recovering/Resolving]
  - Neuralgia [Recovering/Resolving]
  - Back pain [Unknown]
  - Back pain [Unknown]
  - Renal disorder [Unknown]
